FAERS Safety Report 25276862 (Version 1)
Quarter: 2025Q2

REPORT INFORMATION
  Report Type: Spontaneous
  Country: US (occurrence: US)
  Receive Date: 20250507
  Receipt Date: 20250507
  Transmission Date: 20250716
  Serious: No
  Sender: ROCHE
  Company Number: US-ROCHE-10000274714

PATIENT
  Age: 38 Year
  Sex: Male

DRUGS (2)
  1. HEMLIBRA [Suspect]
     Active Substance: EMICIZUMAB-KXWH
     Indication: Factor VIII deficiency
     Dosage: STRENGTH- 300MG/ML
     Route: 058
     Dates: start: 202303
  2. ADYNOVATE INJECTION [Concomitant]

REACTIONS (2)
  - Toothache [Unknown]
  - Tooth infection [Unknown]

NARRATIVE: CASE EVENT DATE: 20250421
